FAERS Safety Report 12818607 (Version 1)
Quarter: 2016Q4

REPORT INFORMATION
  Report Type: Spontaneous
  Country: US (occurrence: US)
  Receive Date: 20161005
  Receipt Date: 20161005
  Transmission Date: 20170207
  Serious: Yes (Disabling)
  Sender: FDA-Public Use
  Company Number: None

PATIENT
  Age: 22 Year
  Sex: Male
  Weight: 84.15 kg

DRUGS (4)
  1. ALLEGRA [Concomitant]
     Active Substance: FEXOFENADINE HYDROCHLORIDE
  2. MULTIPLE VITAMIN [Concomitant]
     Active Substance: VITAMINS
  3. NASALCROM [Concomitant]
     Active Substance: CROMOLYN SODIUM
  4. NASONEX [Suspect]
     Active Substance: MOMETASONE FUROATE
     Indication: SEASONAL ALLERGY
     Route: 055
     Dates: start: 20060101, end: 20160712

REACTIONS (2)
  - Cataract subcapsular [None]
  - Visual impairment [None]

NARRATIVE: CASE EVENT DATE: 20160312
